FAERS Safety Report 11212685 (Version 1)
Quarter: 2015Q2

REPORT INFORMATION
  Report Type: Spontaneous
  Country: FR (occurrence: FR)
  Receive Date: 20150623
  Receipt Date: 20150623
  Transmission Date: 20150821
  Serious: Yes (Other)
  Sender: FDA-Public Use
  Company Number: FR-HORIZON-ACT-0101-2015

PATIENT
  Age: 37 Year
  Sex: Male

DRUGS (3)
  1. CASPOFUNGIN [Suspect]
     Active Substance: CASPOFUNGIN
     Indication: CEREBRAL ASPERGILLOSIS
  2. VORICONAZOLE. [Suspect]
     Active Substance: VORICONAZOLE
     Indication: CEREBRAL ASPERGILLOSIS
     Dosage: WITH PLASMA CONCENTRATION TARGETED TO BE FROM 4 TO 5 MG/L
  3. IMUKIN [Suspect]
     Active Substance: INTERFERON GAMMA
     Indication: CEREBRAL ASPERGILLOSIS

REACTIONS (2)
  - Liver transplant rejection [Recovered/Resolved]
  - Product use issue [Recovered/Resolved]
